FAERS Safety Report 18673070 (Version 2)
Quarter: 2022Q3

REPORT INFORMATION
  Report Type: Spontaneous
  Country: US (occurrence: US)
  Receive Date: 20201228
  Receipt Date: 20220902
  Transmission Date: 20221027
  Serious: Yes (Other)
  Sender: FDA-Public Use
  Company Number: US-SAARTEMIS-SAC202012220331

PATIENT
  Age: 74 Year
  Sex: Female

DRUGS (2)
  1. ZANTAC [Suspect]
     Active Substance: RANITIDINE HYDROCHLORIDE
     Indication: Dyspepsia
     Dosage: 25 MG, QD
     Dates: start: 199901
  2. ZANTAC [Suspect]
     Active Substance: RANITIDINE HYDROCHLORIDE
     Dosage: 75 MG, QD
     Dates: end: 201901

REACTIONS (5)
  - Bladder cancer stage II [Unknown]
  - Colorectal cancer [Unknown]
  - Uterine cancer [Unknown]
  - Breast cancer stage II [Recovering/Resolving]
  - Colon cancer stage II [Recovering/Resolving]

NARRATIVE: CASE EVENT DATE: 20120101
